FAERS Safety Report 16980879 (Version 2)
Quarter: 2020Q1

REPORT INFORMATION
  Report Type: Spontaneous
  Country: US (occurrence: US)
  Receive Date: 20191031
  Receipt Date: 20200310
  Transmission Date: 20200409
  Serious: No
  Sender: FDA-Public Use
  Company Number: US-FARMAPROD-201909-1399

PATIENT
  Sex: Male

DRUGS (8)
  1. VALTREX [Concomitant]
     Active Substance: VALACYCLOVIR HYDROCHLORIDE
  2. DUREZOL [Concomitant]
     Active Substance: DIFLUPREDNATE
  3. AZASITE [Concomitant]
     Active Substance: AZITHROMYCIN MONOHYDRATE
  4. COSOPT [Concomitant]
     Active Substance: DORZOLAMIDE HYDROCHLORIDE\TIMOLOL MALEATE
     Dosage: 22.3-6.8/1 DROPS
  5. ALREX [Concomitant]
     Active Substance: LOTEPREDNOL ETABONATE
  6. OXERVATE [Suspect]
     Active Substance: CENEGERMIN-BKBJ
     Indication: NEUROTROPHIC KERATOPATHY
     Route: 047
     Dates: end: 20191101
  7. RESTASIS [Concomitant]
     Active Substance: CYCLOSPORINE
  8. ZIOPTAN [Concomitant]
     Active Substance: TAFLUPROST

REACTIONS (6)
  - Weight increased [Unknown]
  - Ocular hyperaemia [Recovering/Resolving]
  - Intraocular pressure increased [Unknown]
  - Product use issue [Unknown]
  - Lacrimation increased [Unknown]
  - Product administration error [Unknown]
